FAERS Safety Report 11044500 (Version 2)
Quarter: 2015Q2

REPORT INFORMATION
  Report Type: Spontaneous
  Country: US (occurrence: US)
  Receive Date: 20150417
  Receipt Date: 20150501
  Transmission Date: 20150821
  Serious: No
  Sender: FDA-Public Use
  Company Number: US-ABBVIE-13P-163-1070032-00

PATIENT
  Sex: Female

DRUGS (1)
  1. CREON [Suspect]
     Active Substance: PANCRELIPASE AMYLASE\PANCRELIPASE LIPASE\PANCRELIPASE PROTEASE
     Indication: PANCREATIC INSUFFICIENCY

REACTIONS (6)
  - Decreased appetite [Unknown]
  - Dysgeusia [Unknown]
  - Pain [Not Recovered/Not Resolved]
  - Parosmia [Unknown]
  - Stress [Unknown]
  - Nausea [Unknown]
